FAERS Safety Report 18044877 (Version 3)
Quarter: 2020Q3

REPORT INFORMATION
  Report Type: Spontaneous
  Country: FR (occurrence: FR)
  Receive Date: 20200720
  Receipt Date: 20200813
  Transmission Date: 20201103
  Serious: Yes (Death)
  Sender: FDA-Public Use
  Company Number: FR-TEVA-2020-FR-1801908

PATIENT
  Age: 68 Year
  Sex: Male
  Weight: 80 kg

DRUGS (4)
  1. CISPLATINE [Suspect]
     Active Substance: CISPLATIN
     Indication: CHEMOTHERAPY
     Dosage: 200 MG
     Route: 041
     Dates: start: 20200528, end: 20200528
  2. SULFATE DE MAGNESIUM ANHYDRE [Suspect]
     Active Substance: MAGNESIUM SULFATE
     Indication: FLUID REPLACEMENT
     Dosage: 1.5 GRAM
     Route: 041
     Dates: start: 20200528, end: 20200528
  3. ONDANSETRON [Suspect]
     Active Substance: ONDANSETRON
     Indication: CHEMOTHERAPY
     Dosage: 8 MG
     Route: 041
     Dates: start: 20200528, end: 20200528
  4. ERBITUX [Suspect]
     Active Substance: CETUXIMAB
     Indication: CHEMOTHERAPY
     Dosage: 795 MG
     Route: 041
     Dates: start: 20200528, end: 20200528

REACTIONS (1)
  - Cardio-respiratory arrest [Fatal]

NARRATIVE: CASE EVENT DATE: 20200528
